FAERS Safety Report 5863384-3 (Version None)
Quarter: 2008Q3

REPORT INFORMATION
  Report Type: 
  Country: None (occurrence: None)
  Receive Date: 20080828
  Receipt Date: 20080820
  Transmission Date: 20090109
  Serious: Yes (Hospitalization, Other)
  Sender: FDA-Public Use
  Company Number: PHEH2008US07327

PATIENT
  Sex: Female

DRUGS (3)
  1. RECLAST [Suspect]
     Dosage: UNK
     Dates: start: 20080101
  2. NEURONTIN [Concomitant]
     Indication: NEUROPATHY PERIPHERAL
  3. DEPICA [Concomitant]
     Indication: BIPOLAR DISORDER

REACTIONS (5)
  - BIPOLAR DISORDER [None]
  - CHEST PAIN [None]
  - FATIGUE [None]
  - NEUROPATHY PERIPHERAL [None]
  - SOMNOLENCE [None]
